FAERS Safety Report 17467722 (Version 1)
Quarter: 2020Q1

REPORT INFORMATION
  Report Type: Report from Study
  Country: CA (occurrence: CA)
  Receive Date: 20200227
  Receipt Date: 20200227
  Transmission Date: 20200409
  Serious: Yes (Other)
  Sender: FDA-Public Use
  Company Number: CA-TEVA-2020-CA-1190372

PATIENT
  Sex: Male

DRUGS (2)
  1. COPAXONE [Suspect]
     Active Substance: GLATIRAMER ACETATE
     Dates: start: 20170106, end: 2019
  2. MULTIVITAMIN [Concomitant]
     Active Substance: VITAMINS

REACTIONS (9)
  - Injection site mass [Unknown]
  - Erythema [Recovered/Resolved]
  - Wheezing [Recovered/Resolved]
  - Dyspnoea [Recovered/Resolved]
  - Device leakage [Unknown]
  - Ocular hyperaemia [Recovered/Resolved]
  - Injection site erythema [Unknown]
  - Anaphylactic reaction [Recovered/Resolved]
  - Immediate post-injection reaction [Recovered/Resolved]
